FAERS Safety Report 17849320 (Version 1)
Quarter: 2020Q2

REPORT INFORMATION
  Report Type: Spontaneous
  Country: US (occurrence: US)
  Receive Date: 20200601
  Receipt Date: 20200601
  Transmission Date: 20200714
  Serious: Yes (Death)
  Sender: FDA-Public Use
  Company Number: None

PATIENT
  Age: 80 Year
  Sex: Female
  Weight: 71.24 kg

DRUGS (4)
  1. CONVALESCENT PLASMA [Concomitant]
     Active Substance: HUMAN PLASMA
     Dates: start: 20200528, end: 20200528
  2. ENOXAPARIN [Concomitant]
     Active Substance: ENOXAPARIN
     Dates: start: 20200528, end: 20200529
  3. AZITHROMYCIN ANHYDROUS. [Concomitant]
     Active Substance: AZITHROMYCIN ANHYDROUS
     Dates: start: 20200528, end: 20200529
  4. REMDESIVIR. [Suspect]
     Active Substance: REMDESIVIR
     Indication: COVID-19
     Dosage: ?          OTHER FREQUENCY:ONCE-LOADING DOSE;?
     Route: 042
     Dates: start: 20200528, end: 20200528

REACTIONS (11)
  - Right atrial enlargement [None]
  - Lethargy [None]
  - Malaise [None]
  - Hypotension [None]
  - Vomiting [None]
  - Right ventricular enlargement [None]
  - General physical health deterioration [None]
  - Right ventricular dysfunction [None]
  - Atrioventricular block [None]
  - Pulmonary embolism [None]
  - Cardiogenic shock [None]

NARRATIVE: CASE EVENT DATE: 20200529
